FAERS Safety Report 9980877 (Version 1)
Quarter: 2014Q1

REPORT INFORMATION
  Report Type: Spontaneous
  Country: GB (occurrence: None)
  Receive Date: 20140305
  Receipt Date: 20140305
  Transmission Date: 20141002
  Serious: Yes (Other)
  Sender: FDA-Public Use
  Company Number: AUR-APL-2014-02158

PATIENT
  Age: 31 Year
  Sex: Male
  Weight: 63.73 kg

DRUGS (4)
  1. TERBINAFINE (TERBINAFINE) [Suspect]
     Indication: PRODUCT USED FOR UNKNOWN INDICATION
     Dates: start: 20131120, end: 20140115
  2. BETAMETHASONE VALERATE (BETAMETHASONE VALERATE) [Concomitant]
  3. E45 (AKWA TEARS /01635801/) [Concomitant]
  4. MOMETASONE (MOMETASONE) [Concomitant]

REACTIONS (2)
  - Blister [None]
  - Rash macular [None]
